FAERS Safety Report 11174760 (Version 1)
Quarter: 2015Q2

REPORT INFORMATION
  Report Type: Spontaneous
  Country: US (occurrence: None)
  Receive Date: 20150608
  Receipt Date: 20150608
  Transmission Date: 20150821
  Serious: Yes (Death, Disabling)
  Sender: FDA-Public Use
  Company Number: None

PATIENT
  Age: 78 Year
  Sex: Female
  Weight: 71.67 kg

DRUGS (7)
  1. LISINOPRIL. [Concomitant]
     Active Substance: LISINOPRIL
  2. INVANZ [Suspect]
     Active Substance: ERTAPENEM SODIUM
     Indication: ACUTE KIDNEY INJURY
     Dates: start: 20150421, end: 20150427
  3. PRILOSEC [Concomitant]
     Active Substance: OMEPRAZOLE MAGNESIUM
  4. INVANZ [Suspect]
     Active Substance: ERTAPENEM SODIUM
     Indication: URINARY TRACT INFECTION
     Dates: start: 20150421, end: 20150427
  5. ROPANOLOE [Concomitant]
  6. LIPITOR [Concomitant]
     Active Substance: ATORVASTATIN CALCIUM
  7. VIT. D [Concomitant]

REACTIONS (8)
  - Confusional state [None]
  - Amnesia [None]
  - Fall [None]
  - Balance disorder [None]
  - Abasia [None]
  - Gait disturbance [None]
  - Unevaluable event [None]
  - Aphasia [None]

NARRATIVE: CASE EVENT DATE: 20150421
